FAERS Safety Report 7753433-X (Version None)
Quarter: 2011Q3

REPORT INFORMATION
  Report Type: 
  Country: None (occurrence: None)
  Receive Date: 20110913
  Receipt Date: 20110906
  Transmission Date: 20111222
  Serious: Yes (Congenital Anomaly)
  Sender: FDA-Public Use
  Company Number: 2011SP041906

PATIENT
  Sex: Male
  Weight: 3.3 kg

DRUGS (5)
  1. MIRTAZAPINE [Suspect]
     Indication: MATERNAL EXPOSURE DURING PREGNANCY
     Dosage: TRPL
     Route: 064
     Dates: start: 20100805, end: 20110504
  2. COTRIM [Concomitant]
  3. FOLIO FORTE [Concomitant]
  4. ACETAMINOPHEN [Concomitant]
  5. NASENSPRAY [Concomitant]

REACTIONS (4)
  - BREECH PRESENTATION [None]
  - CAESAREAN SECTION [None]
  - HYPOSPADIAS [None]
  - MATERNAL DRUGS AFFECTING FOETUS [None]
